FAERS Safety Report 6944704-5 (Version None)
Quarter: 2010Q3

REPORT INFORMATION
  Report Type: 
  Country: None (occurrence: None)
  Receive Date: 20100827
  Receipt Date: 20100819
  Transmission Date: 20110219
  Serious: Yes (Other)
  Sender: FDA-Public Use
  Company Number: US-RB-013356-10

PATIENT
  Age: 55 Year
  Sex: Female

DRUGS (1)
  1. SUBOXONE [Suspect]
     Indication: PRODUCT USED FOR UNKNOWN INDICATION
     Dosage: DOSING DETAILS UNKNOWN
     Route: 065

REACTIONS (5)
  - ASTHENIA [None]
  - FATIGUE [None]
  - INSOMNIA [None]
  - LOSS OF CONSCIOUSNESS [None]
  - MALAISE [None]
